FAERS Safety Report 15925720 (Version 2)
Quarter: 2019Q1

REPORT INFORMATION
  Report Type: Spontaneous
  Country: US (occurrence: US)
  Receive Date: 20190206
  Receipt Date: 20190312
  Transmission Date: 20190417
  Serious: No
  Sender: FDA-Public Use
  Company Number: US-BAYER-2019-023155

PATIENT
  Age: 23 Year
  Sex: Female

DRUGS (1)
  1. KYLEENA [Suspect]
     Active Substance: LEVONORGESTREL
     Indication: CONTRACEPTION
     Dosage: 17.5 MCG/24HR, CONT
     Route: 015
     Dates: start: 20181108, end: 20190120

REACTIONS (6)
  - Device expulsion [Recovered/Resolved]
  - Vulvovaginal discomfort [None]
  - Vaginal odour [None]
  - Bacterial vaginosis [None]
  - Procedural pain [None]
  - Vaginal infection [None]

NARRATIVE: CASE EVENT DATE: 20181108
